FAERS Safety Report 5450021-5 (Version None)
Quarter: 2007Q3

REPORT INFORMATION
  Report Type: 
  Country: None (occurrence: None)
  Receive Date: 20070912
  Receipt Date: 20070905
  Transmission Date: 20080115
  Serious: Yes (Other)
  Sender: FDA-Public Use
  Company Number: US-ASTRAZENECA-2007UW21002

PATIENT
  Age: 70 Year
  Sex: Female
  Weight: 59 kg

DRUGS (12)
  1. CRESTOR [Suspect]
     Indication: BLOOD CHOLESTEROL INCREASED
     Route: 048
  2. FISH OIL [Concomitant]
  3. FLAXSEED OIL [Concomitant]
  4. DIGOXIN [Concomitant]
  5. NEXIUM [Concomitant]
  6. SINGULAIR [Concomitant]
  7. COUMADIN [Concomitant]
  8. TRAZODONE HCL [Concomitant]
  9. CITRICAL [Concomitant]
  10. VITAMIN B-12 [Concomitant]
  11. B6 [Concomitant]
  12. LUTEN [Concomitant]

REACTIONS (4)
  - HYPERSENSITIVITY [None]
  - OEDEMA MOUTH [None]
  - SWOLLEN TONGUE [None]
  - VISION BLURRED [None]
